FAERS Safety Report 5657661-9 (Version None)
Quarter: 2008Q1

REPORT INFORMATION
  Report Type: 
  Country: None (occurrence: None)
  Receive Date: 20080310
  Receipt Date: 20080225
  Transmission Date: 20080703
  Serious: Yes (Other)
  Sender: FDA-Public Use
  Company Number: PHBS2008ES02608

PATIENT
  Age: 34 Year
  Sex: Female

DRUGS (2)
  1. TORECAN [Suspect]
     Indication: VERTIGO
     Dosage: 6.5 MG, BID
     Route: 054
     Dates: start: 20080204, end: 20080205
  2. SANDIMMUNE [Concomitant]

REACTIONS (1)
  - DYSTONIA [None]
